FAERS Safety Report 9359792 (Version 1)
Quarter: 2013Q2

REPORT INFORMATION
  Report Type: Spontaneous
  Country: US (occurrence: US)
  Receive Date: 20130621
  Receipt Date: 20130621
  Transmission Date: 20140414
  Serious: No
  Sender: FDA-Public Use
  Company Number: US-US-EMD SERONO, INC.-7218603

PATIENT
  Age: 38 Year
  Sex: Female
  Weight: 86 kg

DRUGS (2)
  1. REBIF [Suspect]
     Indication: PRODUCT USED FOR UNKNOWN INDICATION
     Dates: start: 20130510
  2. REBIF [Suspect]
     Dates: end: 20130527

REACTIONS (4)
  - Migraine [Recovering/Resolving]
  - Dyspnoea [Recovered/Resolved]
  - Chest discomfort [Recovered/Resolved]
  - Muscle spasms [Recovered/Resolved]
